FAERS Safety Report 8247859-8 (Version None)
Quarter: 2012Q1

REPORT INFORMATION
  Report Type: 
  Country: None (occurrence: None)
  Receive Date: 20120330
  Receipt Date: 20120328
  Transmission Date: 20120608
  Serious: Yes (Other)
  Sender: FDA-Public Use
  Company Number: JP-PFIZER INC-2012078763

PATIENT

DRUGS (1)
  1. CABERGOLINE [Suspect]
     Dosage: UNK

REACTIONS (1)
  - SECONDARY ADRENOCORTICAL INSUFFICIENCY [None]
